FAERS Safety Report 9058589 (Version 2)
Quarter: 2013Q1

REPORT INFORMATION
  Report Type: Spontaneous
  Country: US (occurrence: US)
  Receive Date: 20130211
  Receipt Date: 20130227
  Transmission Date: 20140127
  Serious: Yes (Other)
  Sender: FDA-Public Use
  Company Number: US-PFIZER INC-2013049546

PATIENT
  Age: 83 Year
  Sex: Female
  Weight: 66 kg

DRUGS (5)
  1. LATANOPROST [Suspect]
     Indication: ANGLE CLOSURE GLAUCOMA
     Dosage: ONE DROP IN EACH EYE, 1X/DAY AT NIGHT
     Route: 047
     Dates: start: 20120920, end: 20130125
  2. LATANOPROST [Suspect]
     Indication: GLAUCOMA
     Dosage: UNK, ONE DROP EVERY NIGHT IN BOTH EYES
     Route: 047
     Dates: start: 20120920, end: 20130125
  3. ZOCOR [Concomitant]
     Dosage: UNK
  4. SYNTHROID [Concomitant]
     Dosage: UNK
  5. LISINOPRIL [Concomitant]
     Dosage: UNK

REACTIONS (4)
  - Intraocular pressure increased [Recovering/Resolving]
  - Foreign body sensation in eyes [Recovering/Resolving]
  - Erythema of eyelid [Recovering/Resolving]
  - Sensation of pressure [Recovering/Resolving]
